FAERS Safety Report 11460088 (Version 1)
Quarter: 2015Q3

REPORT INFORMATION
  Report Type: Spontaneous
  Country: US (occurrence: US)
  Receive Date: 20150904
  Receipt Date: 20150904
  Transmission Date: 20151125
  Serious: No
  Sender: FDA-Public Use
  Company Number: US-BAUSCH-BL-2015-013746

PATIENT
  Age: 36 Year
  Sex: Male
  Weight: 71.66 kg

DRUGS (5)
  1. PODOFILOX TOPICAL SOLUTION 0.5% [Suspect]
     Active Substance: PODOFILOX
     Indication: SKIN PAPILLOMA
     Dosage: UNK UNK, 2X/DAY
     Route: 061
     Dates: start: 20140814, end: 20140814
  2. RANITIDINE [Concomitant]
     Active Substance: RANITIDINE\RANITIDINE HYDROCHLORIDE
     Indication: PRODUCT USED FOR UNKNOWN INDICATION
     Dosage: 300 MG, UNK
  3. PODOFILOX TOPICAL SOLUTION 0.5% [Suspect]
     Active Substance: PODOFILOX
  4. HYDROXYZINE [Concomitant]
     Active Substance: HYDROXYZINE\HYDROXYZINE HYDROCHLORIDE
     Indication: PRODUCT USED FOR UNKNOWN INDICATION
     Dosage: 25 MG, UNK
  5. PODOFILOX TOPICAL SOLUTION 0.5% [Suspect]
     Active Substance: PODOFILOX
     Dosage: UNK, 3X/DAY
     Route: 061
     Dates: start: 20140815, end: 20140818

REACTIONS (5)
  - Application site swelling [Not Recovered/Not Resolved]
  - Application site discharge [Not Recovered/Not Resolved]
  - Application site pain [Not Recovered/Not Resolved]
  - Application site irritation [Not Recovered/Not Resolved]
  - Inappropriate schedule of drug administration [Recovered/Resolved]

NARRATIVE: CASE EVENT DATE: 201408
